FAERS Safety Report 12242571 (Version 1)
Quarter: 2016Q2

REPORT INFORMATION
  Report Type: Spontaneous
  Country: US (occurrence: US)
  Receive Date: 20160406
  Receipt Date: 20160406
  Transmission Date: 20160815
  Serious: Yes (Hospitalization, Other)
  Sender: FDA-Public Use
  Company Number: US-PFIZER INC-2016196922

PATIENT
  Age: 69 Year
  Sex: Female

DRUGS (19)
  1. MORPHINE SULFATE. [Suspect]
     Active Substance: MORPHINE SULFATE
     Dosage: NON AZ PRODUCT
     Route: 065
  2. SYMBICORT [Suspect]
     Active Substance: BUDESONIDE\FORMOTEROL FUMARATE DIHYDRATE
     Indication: DYSPNOEA
     Route: 055
  3. AMLODIPINE BESYLATE. [Concomitant]
     Active Substance: AMLODIPINE BESYLATE
  4. METOPROLOL TARTRATE. [Concomitant]
     Active Substance: METOPROLOL TARTRATE
  5. RAMIPRIL. [Concomitant]
     Active Substance: RAMIPRIL
  6. ATENOLOL. [Suspect]
     Active Substance: ATENOLOL
     Route: 048
  7. TUDORZA GENUAIR [Suspect]
     Active Substance: ACLIDINIUM BROMIDE
     Route: 055
  8. AMITRIPTYLINE [Concomitant]
     Active Substance: AMITRIPTYLINE
  9. DIPHENHYDRAMINE. [Concomitant]
     Active Substance: DIPHENHYDRAMINE
  10. IBUPROFEN. [Concomitant]
     Active Substance: IBUPROFEN
  11. BENAZEPRIL HYDROCHLORIDE. [Concomitant]
     Active Substance: BENAZEPRIL HYDROCHLORIDE
  12. ADVAIR HFA [Suspect]
     Active Substance: FLUTICASONE PROPIONATE\SALMETEROL XINAFOATE
     Indication: CHRONIC OBSTRUCTIVE PULMONARY DISEASE
     Dosage: 250/50 MCG, ONE PUFF, DAILY
     Route: 065
     Dates: start: 20091109
  13. ADVAIR HFA [Suspect]
     Active Substance: FLUTICASONE PROPIONATE\SALMETEROL XINAFOATE
     Indication: BRONCHITIS CHRONIC
     Dosage: 250/50 MCG, ONE PUFF, DAILY
     Route: 065
     Dates: start: 20091109
  14. VENTOLIN [Suspect]
     Active Substance: ALBUTEROL SULFATE
     Indication: BRONCHITIS CHRONIC
     Dosage: 90 MCG, TWO PUFF AS NEEDED
     Route: 065
     Dates: start: 20110218
  15. CLOPIDOGREL [Concomitant]
     Active Substance: CLOPIDOGREL BISULFATE
  16. ASPIRIN (E.C.) [Concomitant]
     Active Substance: ASPIRIN
  17. PRAVASTATIN SODIUM. [Concomitant]
     Active Substance: PRAVASTATIN SODIUM
  18. OXYGEN. [Concomitant]
     Active Substance: OXYGEN
  19. VENTOLIN [Suspect]
     Active Substance: ALBUTEROL SULFATE
     Indication: CHRONIC OBSTRUCTIVE PULMONARY DISEASE
     Dosage: 90 MCG, TWO PUFF AS NEEDED
     Route: 065
     Dates: start: 20110218

REACTIONS (18)
  - Dehydration [Recovering/Resolving]
  - Neck pain [Recovering/Resolving]
  - Urinary incontinence [Unknown]
  - Myocardial infarction [Recovered/Resolved]
  - Thrombosis [Recovered/Resolved]
  - Urinary tract infection [Recovering/Resolving]
  - Musculoskeletal pain [Recovering/Resolving]
  - Back pain [Recovering/Resolving]
  - Cardiac disorder [Unknown]
  - Regurgitation [Unknown]
  - Pain [Unknown]
  - Headache [Unknown]
  - Kidney infection [Recovering/Resolving]
  - Feeling abnormal [Unknown]
  - Confusional state [Unknown]
  - Retching [Unknown]
  - Intervertebral disc protrusion [Recovering/Resolving]
  - Dyspnoea [Unknown]

NARRATIVE: CASE EVENT DATE: 201601
